FAERS Safety Report 7860670-2 (Version None)
Quarter: 2011Q4

REPORT INFORMATION
  Report Type: 
  Country: None (occurrence: None)
  Receive Date: 20111027
  Receipt Date: 20111018
  Transmission Date: 20120403
  Serious: Yes (Death, Other)
  Sender: FDA-Public Use
  Company Number: US-BAYER-201020453NA

PATIENT
  Age: 73 Year
  Sex: Female
  Weight: 63 kg

DRUGS (24)
  1. DIGOXIN [Concomitant]
     Route: 048
  2. ESMOLOL HCL [Concomitant]
     Dosage: 30 MG
     Route: 042
     Dates: start: 20030714, end: 20030714
  3. MIDAZOLAM HCL [Concomitant]
     Dosage: 13 MG
     Route: 042
     Dates: start: 20030714, end: 20030714
  4. MILRINONE [Concomitant]
     Dosage: 3000 MCG
     Route: 042
     Dates: start: 20030714, end: 20030714
  5. PHENYLEPHRINE HCL [Concomitant]
     Dosage: 1.3 MG
     Route: 042
     Dates: start: 20030714, end: 20030714
  6. DILTIAZEM HCL [Concomitant]
     Dosage: 8 MG
     Route: 042
     Dates: start: 20030714, end: 20030714
  7. DIGOXIN [Concomitant]
     Dosage: 250 MCG
     Route: 042
     Dates: start: 20030714, end: 20030714
  8. FENTANYL-100 [Concomitant]
     Dosage: 2250 MCG
     Route: 042
     Dates: start: 20030714, end: 20030714
  9. TRASYLOL [Suspect]
     Dosage: 50 ML/HOUR, INFUSION
     Route: 042
     Dates: start: 20030714, end: 20030714
  10. HEPARIN [Concomitant]
     Dosage: 34000 U
     Route: 042
     Dates: start: 20030714, end: 20030714
  11. TRASYLOL [Suspect]
     Indication: MITRAL VALVE REPAIR
     Dosage: 1 ML, ONCE TEST DOSE
     Route: 042
     Dates: start: 20030714, end: 20030714
  12. CARDIAZEM [Concomitant]
     Dosage: 10 MG/H
     Route: 042
     Dates: start: 20030714, end: 20030714
  13. OPTIRAY 350 [IODINE,IOVERSOL] [Concomitant]
     Indication: CATHETERISATION CARDIAC
     Dosage: 100 CC
     Dates: start: 20030711
  14. HEPARIN [Concomitant]
     Route: 058
  15. SUCCINYLCHOLINE CHLORIDE [Concomitant]
     Dosage: 100 MG
     Route: 042
     Dates: start: 20030714, end: 20030714
  16. PANCURONIUM [Concomitant]
     Dosage: 14 MG
     Route: 042
     Dates: start: 20030714, end: 20030714
  17. PLASMALYTE [GLUCOSE,POTASSIUM CHLORIDE] [Concomitant]
     Dosage: 2500 ML, UNK
     Dates: start: 20030714
  18. SYNTHROID [Concomitant]
     Route: 048
  19. PHENYLEPHRINE HCL [Concomitant]
     Dosage: 4 MG
     Route: 042
     Dates: start: 20030714, end: 20030714
  20. TRASYLOL [Suspect]
     Indication: CORONARY ARTERY BYPASS
     Dosage: 200 ML LOADING DOSE
     Route: 042
     Dates: start: 20030714, end: 20030714
  21. PROTAMINE SULFATE [Concomitant]
     Dosage: 390 MG
     Route: 042
     Dates: start: 20030714, end: 20030714
  22. DILTIAZEM HCL [Concomitant]
     Dosage: 10 MG
     Route: 042
     Dates: start: 20030714, end: 20030714
  23. EPINEPHRINE [Concomitant]
     Dosage: 346 MCG
     Route: 042
     Dates: start: 20030714, end: 20030714
  24. ALBUMIN (HUMAN) [Concomitant]
     Dosage: 500 ML
     Dates: start: 20030714

REACTIONS (12)
  - CEREBROVASCULAR ACCIDENT [None]
  - PAIN [None]
  - FEAR [None]
  - MULTI-ORGAN FAILURE [None]
  - ANXIETY [None]
  - DEATH [None]
  - RENAL FAILURE [None]
  - ANHEDONIA [None]
  - EMOTIONAL DISTRESS [None]
  - RENAL INJURY [None]
  - INJURY [None]
  - RENAL IMPAIRMENT [None]
